FAERS Safety Report 24431161 (Version 1)
Quarter: 2024Q4

REPORT INFORMATION
  Report Type: Report from Study
  Country: CA (occurrence: CA)
  Receive Date: 20241014
  Receipt Date: 20241014
  Transmission Date: 20250114
  Serious: Yes (Death, Other)
  Sender: AMGEN
  Company Number: CA-AMGEN-CANSL2024076933

PATIENT
  Age: 89 Year
  Sex: Female

DRUGS (3)
  1. AVSOLA [Suspect]
     Active Substance: INFLIXIMAB-AXXQ
     Indication: Crohn^s disease
     Dosage: 400 MILLIGRAM Q 6 WEEKS
     Route: 065
     Dates: start: 20220301
  2. AVSOLA [Suspect]
     Active Substance: INFLIXIMAB-AXXQ
     Dosage: 400 MILLIGRAM Q 6 WEEKS
     Route: 065
  3. AVSOLA [Suspect]
     Active Substance: INFLIXIMAB-AXXQ
     Dosage: 400 MILLIGRAM, Q6WK
     Route: 065

REACTIONS (7)
  - Pneumonia [Fatal]
  - Delirium [Unknown]
  - Balance disorder [Unknown]
  - Fall [Unknown]
  - Head injury [Unknown]
  - Off label use [Unknown]
  - Amnesia [Unknown]

NARRATIVE: CASE EVENT DATE: 20220301
